FAERS Safety Report 5192415-1 (Version None)
Quarter: 2006Q4

REPORT INFORMATION
  Report Type: 
  Country: None (occurrence: None)
  Receive Date: 20061220
  Receipt Date: 20061214
  Transmission Date: 20070319
  Serious: Yes (Other)
  Sender: FDA-Public Use
  Company Number: HQWYE218115DEC06

PATIENT
  Age: 59 Year
  Sex: Female
  Weight: 68.1 kg

DRUGS (3)
  1. ADVIL [Suspect]
     Indication: PAIN
     Dosage: 4 TABLETS ONCE GIVEN AFTER A DENTAL VISIT BY THE DENTIST, ORAL
     Route: 048
     Dates: start: 20061213, end: 20061213
  2. EVISTA [Concomitant]
  3. VASOTEC [Concomitant]

REACTIONS (8)
  - BLOOD PRESSURE DECREASED [None]
  - DRUG HYPERSENSITIVITY [None]
  - DYSPNOEA [None]
  - EYE IRRITATION [None]
  - OXYGEN SATURATION DECREASED [None]
  - THROAT TIGHTNESS [None]
  - URTICARIA [None]
  - VISION BLURRED [None]
